FAERS Safety Report 13499584 (Version 1)
Quarter: 2017Q2

REPORT INFORMATION
  Report Type: Report from Study
  Country: CA (occurrence: CA)
  Receive Date: 20170501
  Receipt Date: 20170501
  Transmission Date: 20170830
  Serious: Yes (Other)
  Sender: FDA-Public Use
  Company Number: CA-EMD SERONO-E2B_80065756

PATIENT
  Age: 24 Year
  Sex: Female

DRUGS (1)
  1. REBIF [Suspect]
     Active Substance: INTERFERON BETA-1A
     Indication: PRODUCT USED FOR UNKNOWN INDICATION
     Route: 058
     Dates: start: 20170119

REACTIONS (3)
  - Loss of consciousness [Recovered/Resolved]
  - Joint injury [Unknown]
  - Back injury [Unknown]

NARRATIVE: CASE EVENT DATE: 201704
